FAERS Safety Report 5440844-0 (Version None)
Quarter: 2007Q3

REPORT INFORMATION
  Report Type: 
  Country: None (occurrence: None)
  Receive Date: 20070831
  Receipt Date: 20070822
  Transmission Date: 20080115
  Serious: Yes (Hospitalization, Other)
  Sender: FDA-Public Use
  Company Number: PHBS2007BR14151

PATIENT
  Age: 38 Year
  Sex: Female
  Weight: 67 kg

DRUGS (4)
  1. TRIMEDAL (NCH) [Suspect]
     Dosage: 1 DF, QD
     Route: 048
     Dates: start: 20070804, end: 20070806
  2. TRIMEDAL TOSSE (NCH) [Suspect]
     Indication: COUGH
     Dosage: 4-5 DF/D
     Route: 048
     Dates: start: 20070804, end: 20070809
  3. LORATADINA [Concomitant]
     Dosage: 1 DF, ONCE/SINGLE
     Dates: start: 20070804, end: 20070804
  4. PREXIGE [Suspect]
     Indication: PAIN
     Dosage: 200 MG, Q12H
     Route: 048
     Dates: start: 20060601

REACTIONS (5)
  - INTRA-UTERINE CONTRACEPTIVE DEVICE INSERTION [None]
  - LAPAROSCOPIC SURGERY [None]
  - NASOPHARYNGITIS [None]
  - RHINITIS [None]
  - THROAT IRRITATION [None]
